FAERS Safety Report 6858310-4 (Version None)
Quarter: 2010Q3

REPORT INFORMATION
  Report Type: 
  Country: None (occurrence: None)
  Receive Date: 20100719
  Receipt Date: 20080604
  Transmission Date: 20110219
  Serious: No
  Sender: FDA-Public Use
  Company Number: US-PFIZER INC-2008010870

PATIENT
  Sex: Female
  Weight: 70.31 kg

DRUGS (11)
  1. CHANTIX [Suspect]
     Indication: SMOKING CESSATION THERAPY
     Route: 048
     Dates: start: 20071101
  2. WELLBUTRIN XL [Suspect]
     Indication: DEPRESSION
     Dates: end: 20080402
  3. LEXAPRO [Suspect]
     Dates: start: 20071212
  4. CHONDROITIN/GLUCOSAMINE [Concomitant]
  5. ACETYLSALICYLIC ACID [Concomitant]
  6. ALL OTHER THERAPEUTIC PRODUCTS [Concomitant]
  7. ALL OTHER THERAPEUTIC PRODUCTS [Concomitant]
  8. DIGESTIVES, INCL ENZYMES [Concomitant]
  9. CALCIUM [Concomitant]
  10. ASACOL [Concomitant]
  11. OMEPRAZOLE [Concomitant]

REACTIONS (9)
  - CRYING [None]
  - DEPRESSION [None]
  - DISTURBANCE IN ATTENTION [None]
  - DIZZINESS [None]
  - DRUG INEFFECTIVE [None]
  - EMOTIONAL DISORDER [None]
  - HEADACHE [None]
  - NAUSEA [None]
  - NERVOUSNESS [None]
